FAERS Safety Report 14029880 (Version 6)
Quarter: 2018Q1

REPORT INFORMATION
  Report Type: Spontaneous
  Country: US (occurrence: US)
  Receive Date: 20171002
  Receipt Date: 20180212
  Transmission Date: 20180508
  Serious: Yes (Other)
  Sender: FDA-Public Use
  Company Number: US-PFIZER INC-2017419667

PATIENT
  Age: 74 Year
  Sex: Female
  Weight: 54 kg

DRUGS (14)
  1. XGEVA [Concomitant]
     Active Substance: DENOSUMAB
     Indication: BONE DISORDER
     Dosage: UNK, MONTHLY (ONCE A MONTH, SHOT)
  2. IBRANCE [Suspect]
     Active Substance: PALBOCICLIB
     Dosage: 100 MG, DAILY
     Route: 048
     Dates: start: 20171007
  3. FULVESTRANT. [Concomitant]
     Active Substance: FULVESTRANT
     Dosage: UNK, MONTHLY (ONCE A MONTH, ONE IN EACH SIDE)
  4. HYDROXYCHLOROQUINE [Concomitant]
     Active Substance: HYDROXYCHLOROQUINE
     Indication: AUTOIMMUNE DISORDER
  5. RESTASIS [Concomitant]
     Active Substance: CYCLOSPORINE
     Indication: DRY MOUTH
  6. IBRANCE [Suspect]
     Active Substance: PALBOCICLIB
     Indication: BONE NEOPLASM
     Dosage: 125 MG, DAILY
     Route: 048
     Dates: start: 20170206, end: 20171006
  7. AMLODIPINE [Concomitant]
     Active Substance: AMLODIPINE BESYLATE
     Indication: BLOOD PRESSURE ABNORMAL
     Dosage: 10 MG, DAILY
  8. IBRANCE [Suspect]
     Active Substance: PALBOCICLIB
     Indication: LYMPHOMA
     Dosage: 125 MG, UNK
  9. HYDROXYCHLOROQUINE [Concomitant]
     Active Substance: HYDROXYCHLOROQUINE
     Indication: INFECTION
     Dosage: 200 MG, 1X/DAY
  10. IBRANCE [Suspect]
     Active Substance: PALBOCICLIB
     Indication: BREAST CANCER FEMALE
     Dosage: 100 MG, UNK
     Dates: end: 201711
  11. ATORVASTATIN [Concomitant]
     Active Substance: ATORVASTATIN
     Indication: BLOOD CHOLESTEROL ABNORMAL
     Dosage: 10 MG, 1X/DAY
  12. RESTASIS [Concomitant]
     Active Substance: CYCLOSPORINE
     Indication: DRY EYE
     Dosage: 0.05 MG, 2X/DAY
  13. PILOCARPINE. [Concomitant]
     Active Substance: PILOCARPINE
     Indication: DRY MOUTH
     Dosage: 5 MG, 1X/DAY
  14. VITAMIN C [Concomitant]
     Active Substance: ASCORBIC ACID
     Dosage: UNK

REACTIONS (4)
  - White blood cell count decreased [Recovered/Resolved]
  - Platelet count decreased [Recovered/Resolved]
  - Leukopenia [Unknown]
  - Full blood count decreased [Recovered/Resolved]

NARRATIVE: CASE EVENT DATE: 20171106
